FAERS Safety Report 6380100-X (Version None)
Quarter: 2009Q3

REPORT INFORMATION
  Report Type: 
  Country: None (occurrence: None)
  Receive Date: 20090929
  Receipt Date: 20090918
  Transmission Date: 20100115
  Serious: Yes (Hospitalization)
  Sender: FDA-Public Use
  Company Number: US-BIOGENIDEC-2009BI029813

PATIENT
  Age: 76 Year
  Sex: Female

DRUGS (2)
  1. AVONEX [Suspect]
     Indication: MULTIPLE SCLEROSIS
     Route: 030
     Dates: start: 20070201, end: 20080812
  2. AVONEX [Suspect]
     Route: 030
     Dates: start: 20090204

REACTIONS (3)
  - CARDIAC FAILURE CONGESTIVE [None]
  - COUGH [None]
  - HEART RATE IRREGULAR [None]
